FAERS Safety Report 15594700 (Version 1)
Quarter: 2018Q4

REPORT INFORMATION
  Report Type: Spontaneous
  Country: US (occurrence: US)
  Receive Date: 20181106
  Receipt Date: 20181106
  Transmission Date: 20190205
  Serious: No
  Sender: FDA-Public Use
  Company Number: US-SA-2018SA302514

PATIENT
  Age: 76 Year
  Sex: Male

DRUGS (9)
  1. DUPIXENT [Suspect]
     Active Substance: DUPILUMAB
     Indication: PRODUCT USED FOR UNKNOWN INDICATION
     Dosage: 1 DF, QOW
     Route: 058
     Dates: start: 201804
  2. ROSUVASTATIN. [Concomitant]
     Active Substance: ROSUVASTATIN
  3. ATENOLOL. [Concomitant]
     Active Substance: ATENOLOL
  4. OXYCODONE [Concomitant]
     Active Substance: OXYCODONE
  5. NEXIUM [ESOMEPRAZOLE SODIUM] [Concomitant]
  6. IRBESARTAN. [Concomitant]
     Active Substance: IRBESARTAN
  7. ACIDOPHILUS [LACTOBACILLUS ACIDOPHILUS] [Concomitant]
  8. MORPHINE SULFATE. [Concomitant]
     Active Substance: MORPHINE SULFATE
  9. FUROSEMIDE. [Concomitant]
     Active Substance: FUROSEMIDE

REACTIONS (1)
  - Dry skin [Unknown]
